FAERS Safety Report 8675803 (Version 4)
Quarter: 2022Q4

REPORT INFORMATION
  Report Type: Spontaneous
  Country: DE (occurrence: DE)
  Receive Date: 20120703
  Receipt Date: 20221121
  Transmission Date: 20230113
  Serious: Yes (Life-Threatening, Hospitalization, Other)
  Sender: FDA-Public Use
  Company Number: None

PATIENT
  Age: 62 Year
  Sex: Male

DRUGS (79)
  1. PANTOZOL [Suspect]
     Active Substance: PANTOPRAZOLE SODIUM
     Indication: Prophylaxis against gastrointestinal ulcer
     Dosage: 40 MG, 1X/DAY
     Route: 048
     Dates: start: 20050629, end: 20050630
  2. PANTOZOL [Suspect]
     Active Substance: PANTOPRAZOLE SODIUM
     Dosage: 40 MG, 1X/DAY
     Route: 048
     Dates: start: 20050703, end: 20050718
  3. NORVASC [Suspect]
     Active Substance: AMLODIPINE BESYLATE
     Indication: Cardiovascular disorder
     Dosage: 5 MILLIGRAM, QD (1-0-0)
     Route: 048
     Dates: start: 20050704, end: 20050709
  4. FUROSEMIDE [Suspect]
     Active Substance: FUROSEMIDE
     Indication: Hypertension
     Dosage: 40 MG, 1X/DAY
     Route: 048
     Dates: start: 20050707
  5. INSULIN HUMAN [Suspect]
     Active Substance: INSULIN HUMAN
     Indication: Diabetes mellitus management
     Dosage: UNK
     Route: 065
     Dates: start: 20050703, end: 20050703
  6. ISOPTIN [Suspect]
     Active Substance: VERAPAMIL HYDROCHLORIDE
     Indication: Arrhythmia
     Dosage: 80 MG, 2X/DAY
     Route: 048
     Dates: start: 20050709
  7. ISOPTIN [Suspect]
     Active Substance: VERAPAMIL HYDROCHLORIDE
     Indication: Atrial fibrillation
     Dosage: 80 MG UNKNOWN FREQUENCY
     Route: 048
     Dates: start: 20050718
  8. THEOPHYLLINE [Suspect]
     Active Substance: THEOPHYLLINE
     Indication: Chronic obstructive pulmonary disease
     Dosage: 200 MG, 1X/DAY
     Route: 042
     Dates: start: 20050627, end: 20050630
  9. THEOPHYLLINE [Suspect]
     Active Substance: THEOPHYLLINE
     Dosage: 600 MG, 1X/DAY
     Route: 048
  10. THEOPHYLLINE [Suspect]
     Active Substance: THEOPHYLLINE
     Dosage: 600 MG, 1X/DAY
     Route: 048
     Dates: start: 20050704, end: 20050709
  11. THEOPHYLLINE [Suspect]
     Active Substance: THEOPHYLLINE
     Dosage: 200 MG, UNK
     Route: 042
     Dates: start: 20050718, end: 20050718
  12. THEOPHYLLINE [Suspect]
     Active Substance: THEOPHYLLINE
     Dosage: 200 MILLIGRAM, QD
     Route: 042
     Dates: start: 20050721, end: 20050721
  13. RAMIPRIL [Suspect]
     Active Substance: RAMIPRIL
     Indication: Myocardial ischaemia
     Dosage: ^DF DAILY^
     Route: 048
     Dates: start: 20050630, end: 20050702
  14. MOXIFLOXACIN HYDROCHLORIDE [Suspect]
     Active Substance: MOXIFLOXACIN HYDROCHLORIDE
     Indication: Infection
     Dosage: 400 MG, 1X/DAY
     Route: 048
     Dates: start: 20050627, end: 20050703
  15. MOXIFLOXACIN HYDROCHLORIDE [Suspect]
     Active Substance: MOXIFLOXACIN HYDROCHLORIDE
     Indication: Chronic obstructive pulmonary disease
  16. CLOMETHIAZOLE [Suspect]
     Active Substance: CLOMETHIAZOLE
     Indication: Alcohol withdrawal syndrome
     Dosage: 6 DOSAGE FORM, QD
     Route: 048
     Dates: start: 20050630, end: 20050703
  17. HALOPERIDOL [Suspect]
     Active Substance: HALOPERIDOL
     Indication: Sedation
     Dosage: 10 GTT, 1X/DAY
     Route: 048
     Dates: start: 20050629, end: 20050630
  18. HALOPERIDOL [Suspect]
     Active Substance: HALOPERIDOL
     Dosage: 10 GTT, 1X/DAY
     Route: 048
     Dates: start: 20050703, end: 20050703
  19. SODIUM CHLORIDE [Suspect]
     Active Substance: SODIUM CHLORIDE
     Indication: Hypovolaemia
     Dosage: 1000 ML/DAY
     Route: 042
     Dates: start: 20050627, end: 20050703
  20. CLONIDINE [Suspect]
     Active Substance: CLONIDINE
     Indication: Alcohol withdrawal syndrome
     Dosage: 1.5 G, 1X/DAY
     Route: 042
     Dates: start: 20050628, end: 20050630
  21. CLONIDINE [Suspect]
     Active Substance: CLONIDINE
     Dosage: 1.5 G, 1X/DAY
     Route: 042
     Dates: start: 20050703, end: 20050704
  22. CLORAZEPATE DIPOTASSIUM [Suspect]
     Active Substance: CLORAZEPATE DIPOTASSIUM
     Indication: Sedation
     Dosage: 5 MG, 3X/DAY
     Route: 048
     Dates: start: 20050627, end: 20050702
  23. CLORAZEPATE DIPOTASSIUM [Suspect]
     Active Substance: CLORAZEPATE DIPOTASSIUM
     Dosage: 10 MILLIGRAM, QD
     Route: 048
     Dates: start: 20050705, end: 20050705
  24. CLORAZEPATE DIPOTASSIUM [Suspect]
     Active Substance: CLORAZEPATE DIPOTASSIUM
     Dosage: 10 MILLIGRAM, QD
     Route: 065
  25. HEPARIN [Suspect]
     Active Substance: HEPARIN SODIUM
     Indication: Thrombosis
     Dosage: 25000 IU, 1X/DAY
     Route: 058
     Dates: start: 20050627, end: 20050709
  26. BRICANYL [Suspect]
     Active Substance: TERBUTALINE SULFATE
     Indication: Dyspnoea
     Dosage: DOSAGE REGIMEN: 1/2-0-1/2
     Route: 058
     Dates: start: 20050627, end: 20050709
  27. ACETYLCYSTEINE [Suspect]
     Active Substance: ACETYLCYSTEINE
     Indication: Mucosal disorder
     Dosage: 600 MG, 1X/DAY
     Route: 048
     Dates: start: 20050629, end: 20050712
  28. BECLOMETHASONE DIPROPIONATE [Suspect]
     Active Substance: BECLOMETHASONE DIPROPIONATE
     Indication: Chronic obstructive pulmonary disease
     Dosage: 2 DOSAGE FORM, QD
     Route: 055
     Dates: start: 20050627, end: 20050715
  29. BECLOMETHASONE DIPROPIONATE [Suspect]
     Active Substance: BECLOMETHASONE DIPROPIONATE
     Dosage: 2 DOSAGE FORM, QD
     Route: 065
  30. FORADIL [Suspect]
     Active Substance: FORMOTEROL FUMARATE
     Indication: Chronic obstructive pulmonary disease
     Dosage: 2 DOSAGE FORM, QD
     Route: 055
     Dates: start: 20050629, end: 20050718
  31. FORADIL [Suspect]
     Active Substance: FORMOTEROL FUMARATE
     Dosage: 2 DOSAGE FORM, QD
     Route: 065
  32. BEROTEC [Suspect]
     Active Substance: FENOTEROL HYDROBROMIDE
     Indication: Chronic obstructive pulmonary disease
     Dosage: 6 DOSAGE FORM, 1/WEEK
     Route: 055
     Dates: start: 20040601
  33. BEROTEC [Suspect]
     Active Substance: FENOTEROL HYDROBROMIDE
     Dosage: UNK, WEEKLY
     Route: 065
  34. SPIRIVA [Suspect]
     Active Substance: TIOTROPIUM BROMIDE MONOHYDRATE
     Indication: Chronic obstructive pulmonary disease
     Dosage: 1 DF, 1X/DAY
     Route: 055
     Dates: start: 20040601
  35. PREDNISONE [Suspect]
     Active Substance: PREDNISONE
     Indication: Chronic obstructive pulmonary disease
     Dosage: UNKNOWN
     Route: 048
     Dates: start: 20050628, end: 20050705
  36. PREDNISONE [Suspect]
     Active Substance: PREDNISONE
     Dosage: UNKNOWN
     Route: 048
     Dates: start: 20050707, end: 20050715
  37. PREDNISONE [Suspect]
     Active Substance: PREDNISONE
     Dosage: UNKNOWN
     Route: 048
     Dates: start: 20050719
  38. AMBROXOL [Suspect]
     Active Substance: AMBROXOL
     Indication: Mucosal disorder
     Dosage: 28 GTT DROPS, QD
     Route: 048
     Dates: start: 20050701, end: 20050718
  39. NITROGLYCERIN [Suspect]
     Active Substance: NITROGLYCERIN
     Indication: Essential hypertension
     Dosage: 50 MG, 1X/DAY
     Route: 042
     Dates: start: 20050702, end: 20050702
  40. FRUCTOSE\INSULIN BEEF [Suspect]
     Active Substance: FRUCTOSE\INSULIN BEEF
     Indication: Blood glucose
     Dosage: DF
     Route: 058
     Dates: start: 20050703, end: 20050703
  41. HYDROCHLOROTHIAZIDE\RAMIPRIL [Suspect]
     Active Substance: HYDROCHLOROTHIAZIDE\RAMIPRIL
     Indication: Myocardial ischaemia
     Dosage: 1 DF, 1X/DAY
     Route: 048
     Dates: start: 20050703
  42. POTASSIUM CARBONATE\POTASSIUM CITRATE [Suspect]
     Active Substance: POTASSIUM CARBONATE\POTASSIUM CITRATE
     Indication: Hypokalaemia
     Dosage: 1 DF, 1X/DAY
     Route: 048
     Dates: start: 20050704, end: 20050714
  43. OXAZEPAM [Suspect]
     Active Substance: OXAZEPAM
     Indication: Sedation
     Dosage: UNK UNK, QD
     Route: 048
     Dates: start: 20050708, end: 20050708
  44. DIGITOXIN [Suspect]
     Active Substance: DIGITOXIN
     Indication: Coronary artery disease
     Dosage: 0.1 MG, 1X/DAY
     Route: 048
     Dates: start: 20050708
  45. MARCUMAR [Suspect]
     Active Substance: PHENPROCOUMON
     Indication: Atrial fibrillation
     Dosage: ACCORDING INR
     Route: 048
     Dates: start: 20050710
  46. CALCIUM [Suspect]
     Active Substance: CALCIUM
     Indication: Osteoporosis
     Dosage: 500 MG, 2X/DAY
     Route: 048
     Dates: start: 20050715, end: 20050718
  47. PREDNISOLONE [Suspect]
     Active Substance: PREDNISOLONE
     Indication: Chronic obstructive pulmonary disease
     Dosage: 15 MG, 1X/DAY
     Route: 048
     Dates: start: 20050716, end: 20050718
  48. PREDNISOLONE [Suspect]
     Active Substance: PREDNISOLONE
     Dosage: 15 MG, 1X/DAY
     Route: 048
     Dates: start: 20050721, end: 20050721
  49. PREDNISOLONE [Suspect]
     Active Substance: PREDNISOLONE
     Dosage: 100 MILLIGRAM, QD
     Route: 065
  50. CHOLECALCIFEROL [Suspect]
     Active Substance: CHOLECALCIFEROL
     Indication: Osteoporosis
     Dosage: 1000 IU, 1X/DAY
     Route: 048
     Dates: start: 20050718, end: 20050718
  51. FLUTICASONE PROPIONATE [Suspect]
     Active Substance: FLUTICASONE PROPIONATE
     Dosage: UNK
     Route: 055
     Dates: start: 20050718
  52. SALMETEROL XINAFOATE [Suspect]
     Active Substance: SALMETEROL XINAFOATE
     Dosage: UNK
     Route: 055
     Dates: start: 20050718
  53. VERAPAMIL HYDROCHLORIDE [Suspect]
     Active Substance: VERAPAMIL HYDROCHLORIDE
     Indication: Tachyarrhythmia
     Dosage: 80 MG - 240 MG DAILY
     Route: 048
     Dates: start: 20050718
  54. VERAPAMIL HYDROCHLORIDE [Suspect]
     Active Substance: VERAPAMIL HYDROCHLORIDE
     Dosage: 80 MG, 3X/DAY
     Route: 048
  55. OMEPRAZOLE [Suspect]
     Active Substance: OMEPRAZOLE
     Indication: Gastric disorder
     Dosage: 20 MG, 1X/DAY, IN THE EVENING
     Route: 048
     Dates: start: 20050718
  56. OMEPRAZOLE [Suspect]
     Active Substance: OMEPRAZOLE
     Dosage: 20 MILLIGRAM, QD
     Route: 065
     Dates: start: 20050719
  57. CALCIUM CARBONATE\CHOLECALCIFEROL [Suspect]
     Active Substance: CALCIUM CARBONATE\CHOLECALCIFEROL
     Indication: Osteoporosis
     Dosage: 2 DF, 1X/DAY
     Route: 048
     Dates: start: 20050719
  58. CALCIUM CARBONATE\CHOLECALCIFEROL [Suspect]
     Active Substance: CALCIUM CARBONATE\CHOLECALCIFEROL
     Dosage: 2 DOSAGE FORM, QD
     Route: 065
     Dates: start: 20050719
  59. HYDROCHLOROTHIAZIDE\RAMIPRIL [Suspect]
     Active Substance: HYDROCHLOROTHIAZIDE\RAMIPRIL
     Indication: Coronary artery disease
     Dosage: 5/25 DAILY
     Route: 048
     Dates: start: 20050703
  60. CALCIUM\VITAMIN D [Suspect]
     Active Substance: CALCIUM\VITAMIN D
     Indication: Osteoporosis
     Dosage: 1000 MILLIGRAM, QD
     Route: 065
     Dates: start: 20050715, end: 20050718
  61. OMEPRAZOLE [Suspect]
     Active Substance: OMEPRAZOLE
     Indication: Prophylaxis
     Dosage: 20 MILLIGRAM, QD
     Route: 065
     Dates: start: 20050719
  62. PREDNISOLONE [Suspect]
     Active Substance: PREDNISOLONE
     Indication: Chronic obstructive pulmonary disease
     Dosage: 280 MILLIGRAM, QD
     Route: 065
     Dates: start: 20050630, end: 20050705
  63. PREDNISOLONE [Suspect]
     Active Substance: PREDNISOLONE
     Dosage: 80 MILLIGRAM, QD
     Route: 065
     Dates: start: 20050707, end: 20050715
  64. PREDNISOLONE [Suspect]
     Active Substance: PREDNISOLONE
     Dosage: 5 MG
     Route: 065
     Dates: start: 20050719
  65. PREDNISOLONE [Suspect]
     Active Substance: PREDNISOLONE
     Dosage: 50 MG, 1X/DAY
     Route: 065
     Dates: start: 20050628, end: 20050705
  66. PREDNISOLONE [Suspect]
     Active Substance: PREDNISOLONE
     Dosage: 20 MILLIGRAM, QD
     Route: 065
     Dates: start: 20050628, end: 20050705
  67. PREDNISOLONE [Suspect]
     Active Substance: PREDNISOLONE
     Dosage: 100 MG, 1X/DAY
     Route: 065
  68. PREDNISOLONE [Suspect]
     Active Substance: PREDNISOLONE
     Dosage: 15 MILLIGRAM, QD
     Route: 065
  69. PREDNISOLONE [Suspect]
     Active Substance: PREDNISOLONE
     Dosage: 20 MILLIGRAM, QD
     Route: 065
     Dates: start: 20050719
  70. FLUTICASONE PROPIONATE\SALMETEROL XINAFOATE [Suspect]
     Active Substance: FLUTICASONE PROPIONATE\SALMETEROL XINAFOATE
     Indication: Chronic obstructive pulmonary disease
     Dosage: UNK
     Route: 065
  71. FLUTICASONE PROPIONATE\SALMETEROL XINAFOATE [Suspect]
     Active Substance: FLUTICASONE PROPIONATE\SALMETEROL XINAFOATE
     Dosage: 2 DOSAGE FORM, QD
     Route: 065
     Dates: start: 20050718
  72. SPIRIVA [Suspect]
     Active Substance: TIOTROPIUM BROMIDE MONOHYDRATE
     Dosage: 1 DOSAGE FORM, QD
     Route: 065
     Dates: start: 20040601
  73. CHOLECALCIFEROL [Suspect]
     Active Substance: CHOLECALCIFEROL
     Indication: Osteoporosis
     Dosage: 1000 INTERNATIONAL UNIT, QD
     Route: 065
     Dates: start: 20050718, end: 20050718
  74. CHOLECALCIFEROL [Suspect]
     Active Substance: CHOLECALCIFEROL
     Dosage: 1000 INTERNATIONAL UNIT, QD
     Route: 065
     Dates: start: 20050717, end: 20050717
  75. PREDNISONE [Suspect]
     Active Substance: PREDNISONE
     Dosage: 100 MILLIGRAM, QD
     Route: 065
  76. PHENPROCOUMON [Suspect]
     Active Substance: PHENPROCOUMON
     Indication: Atrial fibrillation
     Dosage: UNK
     Route: 065
     Dates: start: 20050710
  77. CITRIC ACID MONOHYDRATE\POTASSIUM BICARBONATE\POTASSIUM CITRATE [Suspect]
     Active Substance: CITRIC ACID MONOHYDRATE\POTASSIUM BICARBONATE\POTASSIUM CITRATE
     Indication: Hypokalaemia
     Dosage: 1 DOSAGE FORM, QD
     Route: 065
     Dates: start: 20050704, end: 20050713
  78. VERAPAMIL HYDROCHLORIDE [Suspect]
     Active Substance: VERAPAMIL HYDROCHLORIDE
     Indication: Atrial fibrillation
     Dosage: 240 MILLIGRAM, QD
     Route: 065
     Dates: start: 20050718
  79. ISOPTIN [Suspect]
     Active Substance: VERAPAMIL HYDROCHLORIDE
     Indication: Atrial fibrillation
     Dosage: 80 MILLIGRAM, QD
     Route: 065
     Dates: start: 20050709

REACTIONS (6)
  - Toxic epidermal necrolysis [Recovered/Resolved]
  - Stevens-Johnson syndrome [Recovered/Resolved]
  - Nikolsky^s sign [Unknown]
  - Pruritus [Unknown]
  - Blister [Unknown]
  - Pyrexia [Recovering/Resolving]

NARRATIVE: CASE EVENT DATE: 20050721
